FAERS Safety Report 5812197-7 (Version None)
Quarter: 2008Q3

REPORT INFORMATION
  Report Type: 
  Country: None (occurrence: None)
  Receive Date: 20080716
  Receipt Date: 20080709
  Transmission Date: 20090109
  Serious: Yes (Other)
  Sender: FDA-Public Use
  Company Number: US-AMGEN-STX293422

PATIENT
  Sex: Female

DRUGS (2)
  1. ENBREL [Suspect]
     Indication: PSORIATIC ARTHROPATHY
     Route: 058
     Dates: start: 20001220
  2. UNSPECIFIED STEROIDS [Concomitant]
     Route: 065

REACTIONS (4)
  - CATARACT [None]
  - EYE HAEMORRHAGE [None]
  - IRITIS [None]
  - RETINAL VEIN OCCLUSION [None]
